FAERS Safety Report 9648031 (Version 1)
Quarter: 2013Q4

REPORT INFORMATION
  Report Type: Spontaneous
  Country: US (occurrence: US)
  Receive Date: 20131028
  Receipt Date: 20131028
  Transmission Date: 20140711
  Serious: No
  Sender: FDA-Public Use
  Company Number: US-PFIZER INC-2013302760

PATIENT
  Age: 84 Year
  Sex: Female

DRUGS (2)
  1. LYRICA [Suspect]
     Indication: FIBROMYALGIA
     Dosage: 25 MG, 2X/DAY
     Route: 048
     Dates: start: 20130825, end: 201309
  2. LYRICA [Suspect]
     Dosage: 50 MG, 3X/DAY
     Route: 048
     Dates: start: 201309

REACTIONS (4)
  - Drug ineffective [Unknown]
  - Blood glucose increased [Unknown]
  - Blood cholesterol increased [Unknown]
  - Pain in extremity [Unknown]
